FAERS Safety Report 6226885-4 (Version None)
Quarter: 2009Q2

REPORT INFORMATION
  Report Type: 
  Country: None (occurrence: None)
  Receive Date: 20090612
  Receipt Date: 20090601
  Transmission Date: 20091009
  Serious: Yes (Other)
  Sender: FDA-Public Use
  Company Number: TR-BRISTOL-MYERS SQUIBB COMPANY-14656946

PATIENT
  Age: 29 Year
  Sex: Male

DRUGS (1)
  1. CEFEPIME [Suspect]
     Indication: BRAIN ABSCESS

REACTIONS (1)
  - STATUS EPILEPTICUS [None]
